FAERS Safety Report 25420850 (Version 1)
Quarter: 2025Q2

REPORT INFORMATION
  Report Type: Spontaneous
  Country: US (occurrence: US)
  Receive Date: 20250611
  Receipt Date: 20250611
  Transmission Date: 20250717
  Serious: No
  Sender: TARO
  Company Number: US-TARO PHARMACEUTICALS USA INC.-2024TAR00858

PATIENT

DRUGS (1)
  1. IMIQUIMOD [Suspect]
     Active Substance: IMIQUIMOD
     Indication: Anogenital warts
     Route: 061
     Dates: start: 202405, end: 20240616

REACTIONS (11)
  - Balanoposthitis [Recovering/Resolving]
  - Chemical burn [Not Recovered/Not Resolved]
  - Application site reaction [Not Recovered/Not Resolved]
  - Rash erythematous [Not Recovered/Not Resolved]
  - Application site erythema [Recovering/Resolving]
  - Penis disorder [Not Recovered/Not Resolved]
  - Application site haemorrhage [Recovered/Resolved]
  - Skin erosion [Not Recovered/Not Resolved]
  - Application site irritation [Not Recovered/Not Resolved]
  - Condition aggravated [Not Recovered/Not Resolved]
  - Skin exfoliation [Not Recovered/Not Resolved]

NARRATIVE: CASE EVENT DATE: 20240501
